FAERS Safety Report 23703066 (Version 1)
Quarter: 2024Q2

REPORT INFORMATION
  Report Type: Spontaneous
  Country: US (occurrence: None)
  Receive Date: 20240403
  Receipt Date: 20240403
  Transmission Date: 20240716
  Serious: No
  Sender: FDA-Public Use
  Company Number: None

PATIENT
  Age: 52 Year
  Sex: Female
  Weight: 82.1 kg

DRUGS (5)
  1. HUMIRA [Suspect]
     Active Substance: ADALIMUMAB
     Indication: Sjogren^s syndrome
     Dosage: OTHER FREQUENCY : EVERY 2 WEEKS;?
     Route: 058
     Dates: start: 202401
  2. HUMIRA [Suspect]
     Active Substance: ADALIMUMAB
     Indication: Keratitis
  3. HUMIRA [Suspect]
     Active Substance: ADALIMUMAB
     Indication: Rheumatoid arthritis
  4. HUMIRA [Suspect]
     Active Substance: ADALIMUMAB
     Indication: Rheumatoid factor positive
  5. HUMIRA [Suspect]
     Active Substance: ADALIMUMAB
     Indication: Polyarthritis

REACTIONS (3)
  - Illness [None]
  - Pharyngitis streptococcal [None]
  - Upper respiratory tract infection [None]
